FAERS Safety Report 5570864-7 (Version None)
Quarter: 2007Q4

REPORT INFORMATION
  Report Type: 
  Country: None (occurrence: None)
  Receive Date: 20071221
  Receipt Date: 20071214
  Transmission Date: 20080405
  Serious: Yes (Life-Threatening)
  Sender: FDA-Public Use
  Company Number: JP-ASTRAZENECA-2007SE06601

PATIENT
  Age: 19851 Day
  Sex: Male
  Weight: 85 kg

DRUGS (2)
  1. BLOPRESS [Suspect]
     Indication: HYPERTENSION
     Route: 048
     Dates: start: 20070803, end: 20071118
  2. CRESTOR [Concomitant]
     Route: 048
     Dates: start: 20070603

REACTIONS (1)
  - VENTRICULAR EXTRASYSTOLES [None]
